FAERS Safety Report 12947439 (Version 2)
Quarter: 2016Q4

REPORT INFORMATION
  Report Type: Spontaneous
  Country: US (occurrence: US)
  Receive Date: 20161116
  Receipt Date: 20161206
  Transmission Date: 20170207
  Serious: Yes (Other)
  Sender: FDA-Public Use
  Company Number: US-PFIZER INC-2016530429

PATIENT
  Age: 6 Year
  Sex: Female
  Weight: 24.49 kg

DRUGS (1)
  1. EPIPEN JR [Suspect]
     Active Substance: EPINEPHRINE
     Indication: HYPERSENSITIVITY
     Dosage: 0.15 MG, ONCE
     Route: 030
     Dates: start: 20161005, end: 20161005

REACTIONS (2)
  - Needle issue [Unknown]
  - Injection site laceration [Recovered/Resolved]

NARRATIVE: CASE EVENT DATE: 20161005
